FAERS Safety Report 15895140 (Version 1)
Quarter: 2019Q1

REPORT INFORMATION
  Report Type: Report from Study
  Country: IT (occurrence: IT)
  Receive Date: 20190131
  Receipt Date: 20190131
  Transmission Date: 20190417
  Serious: Yes (Other)
  Sender: FDA-Public Use
  Company Number: IT-ADIENNEP-2019AD000030

PATIENT
  Age: 5 Year
  Sex: Male

DRUGS (1)
  1. THIOTEPA. [Suspect]
     Active Substance: THIOTEPA
     Indication: STEM CELL TRANSPLANT

REACTIONS (2)
  - Human herpesvirus 6 infection [Recovered/Resolved]
  - Gastritis viral [Recovered/Resolved]
